FAERS Safety Report 5497297-6 (Version None)
Quarter: 2007Q4

REPORT INFORMATION
  Report Type: 
  Country: None (occurrence: None)
  Receive Date: 20071025
  Receipt Date: 20060926
  Transmission Date: 20080405
  Serious: No
  Sender: FDA-Public Use
  Company Number: A0621491A

PATIENT
  Sex: Female

DRUGS (5)
  1. ADVAIR DISKUS 100/50 [Suspect]
     Indication: COUGH
     Route: 055
  2. TAMOXIFEN CITRATE [Concomitant]
  3. CELEXA [Concomitant]
  4. PULMICORT [Concomitant]
  5. SINGULAIR [Concomitant]

REACTIONS (1)
  - MUSCLE SPASMS [None]
